FAERS Safety Report 21491978 (Version 1)
Quarter: 2022Q4

REPORT INFORMATION
  Report Type: Spontaneous
  Country: US (occurrence: None)
  Receive Date: 20221021
  Receipt Date: 20221021
  Transmission Date: 20230112
  Serious: No
  Sender: FDA-Public Use
  Company Number: 2022A334697

PATIENT
  Sex: Female
  Weight: 79.4 kg

DRUGS (1)
  1. PULMICORT FLEXHALER [Suspect]
     Active Substance: BUDESONIDE
     Indication: Asthma
     Route: 055

REACTIONS (6)
  - Anxiety [Unknown]
  - Asthma [Recovered/Resolved]
  - Drug dose omission by device [Unknown]
  - Intentional device misuse [Unknown]
  - Device use issue [Unknown]
  - Product use issue [Unknown]
